FAERS Safety Report 9767523 (Version 2)
Quarter: 2015Q3

REPORT INFORMATION
  Report Type: Spontaneous
  Country: US (occurrence: US)
  Receive Date: 20131217
  Receipt Date: 20150731
  Transmission Date: 20151125
  Serious: No
  Sender: FDA-Public Use
  Company Number: US-GILEAD-2009-0022480

PATIENT
  Age: 47 Year
  Sex: Male

DRUGS (11)
  1. PREZISTA [Concomitant]
     Active Substance: DARUNAVIR ETHANOLATE
     Indication: HIV INFECTION
     Route: 048
     Dates: start: 200711, end: 200803
  2. INTELENCE [Concomitant]
     Active Substance: ETRAVIRINE
     Dates: end: 200711
  3. TRIZIVIR [Concomitant]
     Active Substance: ABACAVIR SULFATE\LAMIVUDINE\ZIDOVUDINE
     Indication: HIV INFECTION
     Dates: start: 200711
  4. ISENTRESS [Concomitant]
     Active Substance: RALTEGRAVIR POTASSIUM
     Indication: HIV INFECTION
     Dates: start: 200803
  5. ISENTRESS [Concomitant]
     Active Substance: RALTEGRAVIR POTASSIUM
     Dates: end: 200711
  6. VIREAD [Suspect]
     Active Substance: TENOFOVIR DISOPROXIL FUMARATE
     Indication: HIV INFECTION
     Dates: start: 200803
  7. NORVIR [Concomitant]
     Active Substance: RITONAVIR
     Indication: HIV INFECTION
     Dates: start: 200803
  8. NORVIR [Concomitant]
     Active Substance: RITONAVIR
     Dates: end: 200711
  9. VIREAD [Suspect]
     Active Substance: TENOFOVIR DISOPROXIL FUMARATE
     Dates: end: 200711
  10. PREZISTA [Concomitant]
     Active Substance: DARUNAVIR ETHANOLATE
     Dates: start: 200803
  11. INTELENCE [Concomitant]
     Active Substance: ETRAVIRINE
     Indication: HIV INFECTION
     Dates: start: 200803

REACTIONS (1)
  - Adverse drug reaction [Unknown]
